FAERS Safety Report 15585343 (Version 1)
Quarter: 2018Q4

REPORT INFORMATION
  Report Type: Other
  Country: JP (occurrence: JP)
  Receive Date: 20181105
  Receipt Date: 20181105
  Transmission Date: 20190205
  Serious: Yes (Hospitalization)
  Sender: FDA-Public Use
  Company Number: JP-ACTELION-A-CH2018-181085

PATIENT
  Age: 79 Year
  Sex: Female

DRUGS (4)
  1. BOSENTAN. [Suspect]
     Active Substance: BOSENTAN
     Indication: SKIN ULCER
     Dosage: 125 MG, UNK
     Route: 048
  2. BERAPROST SODIUM [Suspect]
     Active Substance: BERAPROST SODIUM
     Indication: PAIN
     Route: 065
  3. BOSENTAN. [Suspect]
     Active Substance: BOSENTAN
     Dosage: 250 MG, UNK
     Route: 048
  4. CILOSTAZOL. [Concomitant]
     Active Substance: CILOSTAZOL
     Indication: PAIN

REACTIONS (10)
  - Drug-induced liver injury [Unknown]
  - Necrosis [Unknown]
  - Pain [Recovering/Resolving]
  - Pain in extremity [Unknown]
  - Hepatic enzyme increased [Unknown]
  - Arterial rupture [Unknown]
  - Paralysis [Unknown]
  - Hypoaesthesia [Unknown]
  - Scab [Unknown]
  - Biopsy peripheral nerve [Unknown]
